FAERS Safety Report 12452998 (Version 1)
Quarter: 2016Q2

REPORT INFORMATION
  Report Type: Spontaneous
  Country: US (occurrence: US)
  Receive Date: 20160609
  Receipt Date: 20160609
  Transmission Date: 20160815
  Serious: Yes (Hospitalization)
  Sender: FDA-Public Use
  Company Number: US-BION-20160222

PATIENT
  Age: 43 Year
  Sex: Female

DRUGS (1)
  1. LOPRAMIDE UNKNOWN [Suspect]
     Active Substance: LOPERAMIDE
     Indication: EUPHORIC MOOD
     Dosage: AROUND 300 MG/DAY
     Route: 048

REACTIONS (6)
  - Electrocardiogram QT prolonged [Recovered/Resolved]
  - Ventricular tachycardia [Recovered/Resolved]
  - Drug abuse [Recovered/Resolved]
  - Product use issue [Recovered/Resolved]
  - Palpitations [None]
  - Dizziness [None]
